FAERS Safety Report 7230205-6 (Version None)
Quarter: 2011Q1

REPORT INFORMATION
  Report Type: 
  Country: None (occurrence: None)
  Receive Date: 20110118
  Receipt Date: 20110113
  Transmission Date: 20110831
  Serious: Yes (Hospitalization, Other)
  Sender: FDA-Public Use
  Company Number: US-ASTRAZENECA-2008UW02097

PATIENT
  Age: 36 Year
  Sex: Female
  Weight: 77.1 kg

DRUGS (29)
  1. PREVACID [Concomitant]
     Dates: start: 20020125
  2. GLUCOTROL [Concomitant]
     Dates: start: 20020125
  3. GABITRIL [Concomitant]
     Dates: start: 20020125
  4. SEROQUEL [Suspect]
     Indication: BORDERLINE PERSONALITY DISORDER
     Dosage: STARTED AT 25 MG DAILY, CURRENTLY AT 700 MG DAILY
     Route: 048
     Dates: start: 20020101
  5. SEROQUEL [Suspect]
     Indication: POST-TRAUMATIC STRESS DISORDER
     Dosage: STARTED AT 25 MG DAILY, CURRENTLY AT 700 MG DAILY
     Route: 048
     Dates: start: 20020101
  6. SEROQUEL [Suspect]
     Dosage: 100 MG TO 200 MG
     Route: 048
     Dates: start: 20020125
  7. EFFEXOR XR [Concomitant]
     Dates: start: 20020125
  8. GABITRIL [Concomitant]
     Dates: start: 20020625
  9. SYNTHROID [Concomitant]
     Dosage: 0.1 MG-0.15 MG DAILY
     Dates: start: 20020125
  10. SEROQUEL [Suspect]
     Dosage: 200 MG-550 MG DAILY
     Route: 048
     Dates: start: 20020125
  11. SEROQUEL [Suspect]
     Dosage: 200 MG-550 MG DAILY
     Route: 048
     Dates: start: 20020125
  12. SEROQUEL [Suspect]
     Dosage: 200 MG-550 MG DAILY
     Route: 048
     Dates: start: 20020125
  13. TRAZODONE HCL [Concomitant]
     Dates: start: 20040224
  14. HYZAAR [Concomitant]
     Dosage: 50/12.5 MG ONE TABLET AT NIGHT
     Dates: start: 20020625
  15. SEROQUEL [Suspect]
     Indication: BIPOLAR DISORDER
     Dosage: STARTED AT 25 MG DAILY, CURRENTLY AT 700 MG DAILY
     Route: 048
     Dates: start: 20020101
  16. SEROQUEL [Suspect]
     Dosage: 100 MG TO 200 MG
     Route: 048
     Dates: start: 20020125
  17. LEXAPRO [Concomitant]
     Dates: start: 20070101
  18. SEROQUEL [Suspect]
     Dosage: 100 MG TO 200 MG
     Route: 048
     Dates: start: 20020125
  19. SEROQUEL [Suspect]
     Dosage: 100 MG TO 200 MG
     Route: 048
     Dates: start: 20020125
  20. SEROQUEL [Suspect]
     Dosage: 200 MG-550 MG DAILY
     Route: 048
     Dates: start: 20020125
  21. ZYPREXA [Concomitant]
  22. LEXAPRO [Concomitant]
     Dates: start: 20070101
  23. PRAXIN [Concomitant]
     Dates: start: 20100125
  24. NEURONTIN [Concomitant]
     Dates: start: 20020625
  25. SEROQUEL [Suspect]
     Indication: MAJOR DEPRESSION
     Dosage: STARTED AT 25 MG DAILY, CURRENTLY AT 700 MG DAILY
     Route: 048
     Dates: start: 20020101
  26. TRAZODONE HCL [Concomitant]
     Dates: start: 20030101
  27. TOPAMAX [Concomitant]
     Dates: start: 20050101
  28. HYZAAR [Concomitant]
     Indication: HYPERTENSION
     Dosage: 50/12.5 MG ONE TABLET AT NIGHT
     Dates: start: 20020125
  29. ZANTAC [Concomitant]
     Dates: end: 20020125

REACTIONS (9)
  - BIPOLAR DISORDER [None]
  - DIABETIC COMA [None]
  - OBESITY [None]
  - BLOOD CHOLESTEROL INCREASED [None]
  - HYPOTHYROIDISM [None]
  - TYPE 2 DIABETES MELLITUS [None]
  - HYPERLIPIDAEMIA [None]
  - DIABETES MELLITUS [None]
  - DEPRESSION [None]
